FAERS Safety Report 20568122 (Version 1)
Quarter: 2022Q1

REPORT INFORMATION
  Report Type: Spontaneous
  Country: US (occurrence: US)
  Receive Date: 20220308
  Receipt Date: 20220308
  Transmission Date: 20220423
  Serious: No
  Sender: FDA-Public Use
  Company Number: US-009507513-2202USA005598

PATIENT
  Age: 49 Year

DRUGS (2)
  1. INTEGRILIN [Suspect]
     Active Substance: EPTIFIBATIDE
     Indication: Coronary artery aneurysm
  2. INTEGRILIN [Suspect]
     Active Substance: EPTIFIBATIDE
     Indication: Thrombolysis

REACTIONS (1)
  - Product use in unapproved indication [Unknown]
